FAERS Safety Report 8114104-3 (Version None)
Quarter: 2012Q1

REPORT INFORMATION
  Report Type: 
  Country: None (occurrence: None)
  Receive Date: 20120203
  Receipt Date: 20120130
  Transmission Date: 20120608
  Serious: Yes (Other)
  Sender: FDA-Public Use
  Company Number: JP-ASTRAZENECA-2012SE05983

PATIENT
  Age: 56 Year
  Sex: Female

DRUGS (2)
  1. ROPIVACAINE HYDROCHLORIDE [Suspect]
     Indication: NERVE BLOCK
     Route: 053
  2. CARBOCAIN [Suspect]
     Indication: NERVE BLOCK
     Route: 053

REACTIONS (3)
  - TOXICITY TO VARIOUS AGENTS [None]
  - FEELING ABNORMAL [None]
  - CLONIC CONVULSION [None]
